FAERS Safety Report 5297368-3 (Version None)
Quarter: 2007Q2

REPORT INFORMATION
  Report Type: 
  Country: None (occurrence: None)
  Receive Date: 20070416
  Receipt Date: 20070403
  Transmission Date: 20071010
  Serious: Yes (Other)
  Sender: FDA-Public Use
  Company Number: PHEH2007US04805

PATIENT
  Age: 78 Year
  Sex: Female

DRUGS (4)
  1. ENABLEX [Suspect]
     Dosage: 7.5 MG, QD
     Route: 048
     Dates: start: 20070118
  2. COUMADIN [Concomitant]
  3. LISINOPRIL [Concomitant]
  4. LIPITOR [Concomitant]

REACTIONS (2)
  - CONSTIPATION [None]
  - PALPITATIONS [None]
